FAERS Safety Report 9847829 (Version 1)
Quarter: 2014Q1

REPORT INFORMATION
  Report Type: Spontaneous
  Country: US (occurrence: US)
  Receive Date: 20140128
  Receipt Date: 20140128
  Transmission Date: 20141002
  Serious: No
  Sender: FDA-Public Use
  Company Number: US-BIOGENIDEC-2014BI006792

PATIENT
  Age: 48 Year
  Sex: Female
  Weight: 79 kg

DRUGS (3)
  1. TECFIDERA [Suspect]
     Indication: PRODUCT USED FOR UNKNOWN INDICATION
     Route: 048
  2. IMODIUM A-D [Concomitant]
  3. VITAMIN D3 [Concomitant]

REACTIONS (2)
  - Hyperhidrosis [Unknown]
  - Flushing [Unknown]
